FAERS Safety Report 5063134-7 (Version None)
Quarter: 2006Q3

REPORT INFORMATION
  Report Type: 
  Country: None (occurrence: None)
  Receive Date: 20060727
  Receipt Date: 20060718
  Transmission Date: 20061208
  Serious: Yes (Hospitalization)
  Sender: FDA-Public Use
  Company Number: JP-JNJFOC-20060700488

PATIENT
  Sex: Male

DRUGS (12)
  1. RISPERDAL [Suspect]
     Indication: INSOMNIA
     Route: 048
  2. QUETIAPINE FUMARATE [Interacting]
     Route: 048
  3. QUETIAPINE FUMARATE [Interacting]
     Indication: DELIRIUM
     Route: 048
  4. AMIODARONE HCL [Suspect]
     Indication: CARDIAC FAILURE
     Route: 048
  5. LASIX [Concomitant]
     Indication: CARDIAC FAILURE
     Route: 048
  6. ASPIRIN [Concomitant]
     Indication: CARDIAC FAILURE
     Route: 048
  7. RENIVACE [Concomitant]
     Indication: CARDIAC FAILURE
     Route: 048
  8. ARTIST [Concomitant]
     Indication: CARDIAC FAILURE
     Route: 048
  9. ISOSORBIDE MONONITRATE [Concomitant]
     Indication: CARDIAC FAILURE
     Route: 048
  10. MEXIRATE [Concomitant]
     Indication: CARDIAC FAILURE
     Route: 048
  11. ALDACTONE [Concomitant]
     Indication: CARDIAC FAILURE
     Route: 048
  12. MAGLAX [Concomitant]
     Indication: CARDIAC FAILURE
     Route: 048

REACTIONS (3)
  - BRADYCARDIA [None]
  - DRUG INTERACTION [None]
  - HYPOTENSION [None]
